FAERS Safety Report 6070875-1 (Version None)
Quarter: 2009Q1

REPORT INFORMATION
  Report Type: 
  Country: None (occurrence: None)
  Receive Date: 20090209
  Receipt Date: 20081031
  Transmission Date: 20090719
  Serious: No
  Sender: FDA-Public Use
  Company Number: A0754422A

PATIENT
  Sex: Female

DRUGS (4)
  1. PAXIL [Suspect]
     Indication: DEPRESSION
     Dosage: 60MG PER DAY
     Route: 048
  2. TOPAMAX [Concomitant]
  3. EFFEXOR [Concomitant]
  4. BUSPAR [Concomitant]

REACTIONS (2)
  - CRYING [None]
  - MALAISE [None]
